FAERS Safety Report 7362996 (Version 8)
Quarter: 2013Q2

REPORT INFORMATION
  Report Type: Spontaneous
  Country: US (occurrence: US)
  Receive Date: 20100422
  Receipt Date: 20130405
  Transmission Date: 20140414
  Serious: Yes (Other)
  Sender: FDA-Public Use
  Company Number: US-ASTRAZENECA-2010SE01349

PATIENT
  Age: 87 Year
  Sex: Female

DRUGS (9)
  1. TOPROL XL [Suspect]
     Route: 048
  2. ZESTRIL [Suspect]
     Route: 048
  3. ZESTRIL [Suspect]
     Dosage: GENERIC
     Route: 048
  4. CRESTOR [Suspect]
     Route: 048
  5. PRAVASTATIN [Suspect]
     Route: 065
  6. PROSTATIN [Suspect]
     Route: 065
  7. ASCRITPION [Concomitant]
  8. LEVACOR [Concomitant]
  9. ASPIRIN [Concomitant]

REACTIONS (15)
  - Cataract [Unknown]
  - Loss of consciousness [Unknown]
  - Escherichia infection [Unknown]
  - Small cell lung cancer extensive stage [Unknown]
  - Hypotension [Unknown]
  - Atrial fibrillation [Unknown]
  - Blood cholesterol increased [Unknown]
  - Heart rate increased [Unknown]
  - Hypertension [Unknown]
  - Nocturia [Unknown]
  - Malaise [Unknown]
  - Burning sensation [Unknown]
  - Adverse drug reaction [Unknown]
  - Nightmare [Unknown]
  - Drug ineffective [Unknown]
